FAERS Safety Report 6715820-8 (Version None)
Quarter: 2010Q2

REPORT INFORMATION
  Report Type: 
  Country: None (occurrence: None)
  Receive Date: 20100506
  Receipt Date: 20100506
  Transmission Date: 20101027
  Serious: No
  Sender: FDA-Public Use
  Company Number: None

PATIENT
  Sex: Male
  Weight: 72.2 kg

DRUGS (1)
  1. ERBITUX [Suspect]
     Dosage: 1932 MG

REACTIONS (1)
  - HYPOMAGNESAEMIA [None]
